FAERS Safety Report 16546621 (Version 2)
Quarter: 2021Q3

REPORT INFORMATION
  Report Type: Spontaneous
  Country: US (occurrence: US)
  Receive Date: 20190709
  Receipt Date: 20210709
  Transmission Date: 20211014
  Serious: Yes (Other)
  Sender: FDA-Public Use
  Company Number: US-ASTELLAS-2018US050057

PATIENT
  Sex: Male

DRUGS (1)
  1. MYRBETRIQ [Suspect]
     Active Substance: MIRABEGRON
     Indication: PRODUCT USED FOR UNKNOWN INDICATION
     Dates: start: 201811

REACTIONS (7)
  - Penile pain [Unknown]
  - Sinus disorder [Unknown]
  - Sneezing [Unknown]
  - Urinary retention [Unknown]
  - Movement disorder [Unknown]
  - Arthralgia [Unknown]
  - Drug ineffective [Unknown]
